FAERS Safety Report 17904608 (Version 1)
Quarter: 2020Q3

REPORT INFORMATION
  Report Type: Report from Study
  Country: US (occurrence: US)
  Receive Date: 20200617
  Receipt Date: 20200617
  Transmission Date: 20201104
  Serious: Yes (Life-Threatening, Hospitalization, Other)
  Sender: FDA-Public Use
  Company Number: US-BIOVITRUM-NOVI-000200

PATIENT
  Age: 3 Month
  Sex: Male
  Weight: 7 kg

DRUGS (8)
  1. EMAPALUMAB. [Suspect]
     Active Substance: EMAPALUMAB
     Indication: FAMILIAL HAEMOPHAGOCYTIC LYMPHOHISTIOCYTOSIS
     Dosage: 3 MG/KG, 3 INFUSIONS ON 21?, 24?, AND 28?OCT?2019
     Route: 041
     Dates: start: 20191021, end: 20191028
  2. EMAPALUMAB. [Suspect]
     Active Substance: EMAPALUMAB
     Dosage: 10 MG/KG, 3 INFUSIONS (ON 07?NOV?2019, 11?NOV?2019 AND 15?NOV?2019)
     Route: 041
     Dates: start: 20191107, end: 20191115
  3. DEXAMETHASONE. [Concomitant]
     Active Substance: DEXAMETHASONE
     Indication: PRODUCT USED FOR UNKNOWN INDICATION
     Dosage: 3.2 MG, QD
     Route: 048
     Dates: start: 20191018
  4. VALGANCICLOVIR. [Concomitant]
     Active Substance: VALGANCICLOVIR
     Indication: PRODUCT USED FOR UNKNOWN INDICATION
     Dosage: 100 MG, QD
     Route: 048
     Dates: start: 20191025, end: 20191115
  5. EMAPALUMAB. [Suspect]
     Active Substance: EMAPALUMAB
     Dosage: 6 MG/KG, 2 INFUSIONS ON 31?OCT?2019 AND 04?NOV?2019
     Route: 041
     Dates: start: 20191031, end: 20191104
  6. FLUCONAZOLE. [Concomitant]
     Active Substance: FLUCONAZOLE
     Indication: PRODUCT USED FOR UNKNOWN INDICATION
     Dosage: 32 MG, QD
     Route: 048
     Dates: start: 20191023
  7. FOSCARNET [Concomitant]
     Active Substance: FOSCARNET
     Indication: PRODUCT USED FOR UNKNOWN INDICATION
     Dosage: 1517 MG, QD
     Route: 042
     Dates: start: 20191115
  8. EMAPALUMAB. [Suspect]
     Active Substance: EMAPALUMAB

REACTIONS (5)
  - Pneumatosis intestinalis [Recovered/Resolved]
  - Condition aggravated [Recovered/Resolved]
  - Thrombocytopenia [Not Recovered/Not Resolved]
  - Anaemia [Not Recovered/Not Resolved]
  - Acute respiratory failure [Recovered/Resolved]

NARRATIVE: CASE EVENT DATE: 20191111
